FAERS Safety Report 12673478 (Version 1)
Quarter: 2016Q3

REPORT INFORMATION
  Report Type: Spontaneous
  Country: US (occurrence: US)
  Receive Date: 20160822
  Receipt Date: 20160822
  Transmission Date: 20161109
  Serious: No
  Sender: FDA-Public Use
  Company Number: US-BAYER-2016-158129

PATIENT
  Age: 59 Year
  Sex: Female

DRUGS (1)
  1. CLIMARA [Suspect]
     Active Substance: ESTRADIOL
     Dosage: UNK
     Route: 062
     Dates: start: 201607, end: 201608

REACTIONS (2)
  - Product adhesion issue [None]
  - Drug ineffective [None]

NARRATIVE: CASE EVENT DATE: 201607
